FAERS Safety Report 5828760-3 (Version None)
Quarter: 2008Q3

REPORT INFORMATION
  Report Type: 
  Country: None (occurrence: None)
  Receive Date: 20080729
  Receipt Date: 20080718
  Transmission Date: 20090109
  Serious: Yes (Other)
  Sender: FDA-Public Use
  Company Number: URSO-2008-072

PATIENT
  Age: 62 Year
  Sex: Male

DRUGS (3)
  1. URSO            (URSODEOXYCHOLIC ACID) [Suspect]
     Indication: ALCOHOLIC LIVER DISEASE
     Dosage: 300 MG
     Route: 048
     Dates: start: 20080423, end: 20080423
  2. ALLELOCK        (OLOPATADINE HYDROCHLORIDE) [Suspect]
     Route: 048
  3. CELESTAMINE        (BETAMETHASONE AND DEXCHLORPHENIRAMINE) [Suspect]
     Dosage: ORAL
     Route: 048

REACTIONS (2)
  - CONVULSION [None]
  - PYREXIA [None]
